FAERS Safety Report 4771059-7 (Version None)
Quarter: 2005Q3

REPORT INFORMATION
  Report Type: 
  Country: None (occurrence: None)
  Receive Date: 20050915
  Receipt Date: 20050906
  Transmission Date: 20060218
  Serious: Yes (Hospitalization)
  Sender: FDA-Public Use
  Company Number: US-SANOFI-SYNTHELABO-A03200502817

PATIENT
  Sex: Male
  Weight: 126.98 kg

DRUGS (5)
  1. PLAVIX [Suspect]
     Indication: ANGIOPLASTY
     Route: 048
     Dates: start: 20050812
  2. PLAVIX [Suspect]
     Indication: STENT PLACEMENT
     Route: 048
     Dates: start: 20050812
  3. ALTACE [Concomitant]
     Route: 048
     Dates: start: 20020101
  4. LIPITOR [Concomitant]
     Route: 048
     Dates: start: 20020101
  5. TOPROL-XL [Concomitant]
     Route: 048

REACTIONS (3)
  - CATHETER SITE HAEMATOMA [None]
  - HYPOTENSION [None]
  - PYREXIA [None]
